FAERS Safety Report 5567825-0 (Version None)
Quarter: 2007Q4

REPORT INFORMATION
  Report Type: 
  Country: None (occurrence: None)
  Receive Date: 20071220
  Receipt Date: 20071210
  Transmission Date: 20080405
  Serious: Yes (Other)
  Sender: FDA-Public Use
  Company Number: PHBS2007GR08287

PATIENT
  Age: 58 Year
  Sex: Male

DRUGS (1)
  1. ELIDEL [Suspect]
     Indication: ERYTHEMA
     Dosage: TWO 100-G TUBES WITHIN 4 MONTHS
     Route: 061
     Dates: start: 20060801, end: 20061201

REACTIONS (9)
  - DRY SKIN [None]
  - EXCORIATION [None]
  - EXFOLIATIVE RASH [None]
  - LICHENIFICATION [None]
  - PRURITUS [None]
  - RASH ERYTHEMATOUS [None]
  - RASH PUSTULAR [None]
  - TINEA CRURIS [None]
  - WRONG DRUG ADMINISTERED [None]
